FAERS Safety Report 11874586 (Version 1)
Quarter: 2015Q4

REPORT INFORMATION
  Report Type: Spontaneous
  Country: AU (occurrence: None)
  Receive Date: 20151228
  Receipt Date: 20151228
  Transmission Date: 20160305
  Serious: Yes (Hospitalization)
  Sender: FDA-Public Use
  Company Number: None

PATIENT
  Age: 75 Year
  Sex: Male
  Weight: 95 kg

DRUGS (2)
  1. LIPITOR [Suspect]
     Active Substance: ATORVASTATIN CALCIUM
     Indication: CARDIAC OPERATION
     Dosage: 1, ONCE DAILY
  2. MULTI VITAMIN S [Concomitant]

REACTIONS (3)
  - Speech disorder [None]
  - Muscle disorder [None]
  - Gait disturbance [None]
